FAERS Safety Report 18543740 (Version 2)
Quarter: 2020Q4

REPORT INFORMATION
  Report Type: Report from Study
  Country: None (occurrence: US)
  Receive Date: 20201124
  Receipt Date: 20201228
  Transmission Date: 20210114
  Serious: Yes (Hospitalization, Other)
  Sender: FDA-Public Use
  Company Number: US-ABBVIE-20K-163-3661288-00

PATIENT
  Age: 71 Year
  Sex: Male
  Weight: 65.83 kg

DRUGS (1)
  1. RINVOQ [Suspect]
     Active Substance: UPADACITINIB
     Indication: RHEUMATOID ARTHRITIS
     Route: 048
     Dates: start: 202011

REACTIONS (5)
  - Rib fracture [Recovering/Resolving]
  - Myocardial infarction [Recovered/Resolved]
  - Interstitial lung disease [Unknown]
  - Fall [Unknown]
  - Coronary artery occlusion [Recovered/Resolved]

NARRATIVE: CASE EVENT DATE: 2020
